FAERS Safety Report 14205368 (Version 1)
Quarter: 2017Q4

REPORT INFORMATION
  Report Type: Spontaneous
  Country: US (occurrence: None)
  Receive Date: 20171118
  Receipt Date: 20171118
  Transmission Date: 20180321
  Serious: No
  Sender: FDA-Public Use
  Company Number: None

PATIENT
  Age: 56 Year
  Sex: Female

DRUGS (1)
  1. COSENTYX [Suspect]
     Active Substance: SECUKINUMAB
     Indication: PSORIASIS
     Dosage: 150MG/ML 2 PEN Q4W SQ
     Route: 058
     Dates: start: 20170223

REACTIONS (3)
  - Body surface area increased [None]
  - Therapy non-responder [None]
  - Therapy cessation [None]

NARRATIVE: CASE EVENT DATE: 20171117
